FAERS Safety Report 23565101 (Version 1)
Quarter: 2024Q1

REPORT INFORMATION
  Report Type: Spontaneous
  Country: US (occurrence: None)
  Receive Date: 20240223
  Receipt Date: 20240223
  Transmission Date: 20240410
  Serious: Yes (Death)
  Sender: FDA-Public Use
  Company Number: None

PATIENT
  Sex: Female

DRUGS (1)
  1. ZARXIO [Suspect]
     Active Substance: FILGRASTIM-SNDZ
     Indication: Myelosuppression
     Dosage: INJECT 0.5 ML (300 MCG) DAILY INTO THE SKIN FOR 5 DAYS?

REACTIONS (1)
  - Death [None]
